FAERS Safety Report 5320974-4 (Version None)
Quarter: 2007Q2

REPORT INFORMATION
  Report Type: 
  Country: None (occurrence: None)
  Receive Date: 20070510
  Receipt Date: 20070427
  Transmission Date: 20071010
  Serious: Yes (Other)
  Sender: FDA-Public Use
  Company Number: PHBS2007JP07453

PATIENT
  Sex: Male

DRUGS (2)
  1. TEGRETOL [Suspect]
     Indication: CANCER PAIN
     Dosage: 100 MG, BID
     Route: 048
  2. MS CONTIN [Concomitant]
     Dosage: 120 MG/DAY
     Route: 048

REACTIONS (1)
  - SELF INJURIOUS BEHAVIOUR [None]
